FAERS Safety Report 7483716-2 (Version None)
Quarter: 2011Q2

REPORT INFORMATION
  Report Type: 
  Country: None (occurrence: None)
  Receive Date: 20110517
  Receipt Date: 20110505
  Transmission Date: 20111010
  Serious: Yes (Other)
  Sender: FDA-Public Use
  Company Number: PHHY2011US39731

PATIENT
  Sex: Female

DRUGS (4)
  1. GABAPENTIN [Concomitant]
     Dosage: 600 MG, UNK
  2. AMITRIPTYLINE HCL [Concomitant]
     Dosage: 20 MG, UNK
  3. COENZYME Q10 [Concomitant]
     Dosage: UNK UKN, UNK
  4. GILENYA [Suspect]
     Dosage: 0.5 MG, QD
     Route: 048

REACTIONS (2)
  - ASTHMA [None]
  - DYSPNOEA [None]
